FAERS Safety Report 5032162-X (Version None)
Quarter: 2006Q2

REPORT INFORMATION
  Report Type: 
  Country: None (occurrence: None)
  Receive Date: 20060619
  Receipt Date: 20060613
  Transmission Date: 20061013
  Serious: Yes (Death)
  Sender: FDA-Public Use
  Company Number: THQ2006A00518

PATIENT
  Sex: Male

DRUGS (3)
  1. ACTOS [Suspect]
     Dosage: 30 MG
  2. LANTUS (INSULINE GLARGINE) [Concomitant]
  3. ACTRAPID HUMN (INSULIN HUMAN) [Concomitant]

REACTIONS (1)
  - DEATH [None]
